FAERS Safety Report 9412534 (Version 1)
Quarter: 2013Q3

REPORT INFORMATION
  Report Type: Spontaneous
  Country: US (occurrence: None)
  Receive Date: 20130715
  Receipt Date: 20130715
  Transmission Date: 20140515
  Serious: Yes (Hospitalization, Other)
  Sender: FDA-Public Use
  Company Number: ADR-2013-00837

PATIENT
  Age: 45 Year
  Sex: Male

DRUGS (1)
  1. LIORESAL [Suspect]
     Indication: MUSCLE SPASTICITY

REACTIONS (4)
  - Muscle spasticity [None]
  - Multiple sclerosis relapse [None]
  - Progressive multifocal leukoencephalopathy [None]
  - Device malfunction [None]
